FAERS Safety Report 5244929-3 (Version None)
Quarter: 2007Q1

REPORT INFORMATION
  Report Type: 
  Country: None (occurrence: None)
  Receive Date: 20070221
  Receipt Date: 20070221
  Transmission Date: 20070707
  Serious: Yes (Other)
  Sender: FDA-Public Use
  Company Number: None

PATIENT
  Age: 40 Year
  Sex: Male
  Weight: 126 kg

DRUGS (7)
  1. EPZICOM [Suspect]
     Indication: HIV INFECTION
     Dosage: 1 TABLET QD ORALLY
     Route: 048
     Dates: start: 20060202, end: 20070125
  2. TRUVADA [Suspect]
     Indication: HIV INFECTION
     Dosage: 1 TABLET QD ORALLY
     Route: 048
     Dates: start: 20060202, end: 20070125
  3. PLACEBO [Suspect]
     Indication: HIV INFECTION
     Dosage: 1 TABLET QD ORALLY
     Route: 048
     Dates: start: 20060202, end: 20070125
  4. PLACEBO [Suspect]
     Indication: HIV INFECTION
     Dosage: 1 TABLET QD ORALLY
     Route: 048
     Dates: start: 20060202, end: 20070125
  5. ATAZANAVIR SULFATE [Suspect]
     Indication: HIV INFECTION
     Dosage: 300MG QD ORALLY
     Route: 048
     Dates: start: 20060202, end: 20070125
  6. RITONAVIR [Suspect]
     Indication: HIV INFECTION
     Dosage: 100MG QD ORALLY
     Route: 048
     Dates: start: 20060202, end: 20070125
  7. FOLATE [Concomitant]

REACTIONS (3)
  - INFLUENZA LIKE ILLNESS [None]
  - PLATELET COUNT DECREASED [None]
  - THROMBOCYTOPENIA [None]
